FAERS Safety Report 22063673 (Version 6)
Quarter: 2023Q2

REPORT INFORMATION
  Report Type: Spontaneous
  Country: JP (occurrence: JP)
  Receive Date: 20230306
  Receipt Date: 20230621
  Transmission Date: 20230721
  Serious: Yes (Hospitalization, Other)
  Sender: FDA-Public Use
  Company Number: JP-ASTELLAS-2023JP002803

PATIENT
  Age: 8 Decade
  Sex: Female

DRUGS (6)
  1. PADCEV [Suspect]
     Active Substance: ENFORTUMAB VEDOTIN-EJFV
     Indication: Malignant neoplasm of renal pelvis
     Route: 041
     Dates: start: 20230202, end: 20230216
  2. PADCEV [Suspect]
     Active Substance: ENFORTUMAB VEDOTIN-EJFV
     Dosage: 1.0 MG/KG, ONCE WEEKLY
     Route: 041
     Dates: start: 20230309, end: 20230406
  3. AVELUMAB [Concomitant]
     Active Substance: AVELUMAB
     Indication: Product used for unknown indication
     Dosage: UNK UNK, UNKNOWN FREQ.
     Route: 065
  4. HERBALS [Concomitant]
     Active Substance: HERBALS
     Indication: Malaise
     Dosage: UNK UNK, UNKNOWN FREQ.
     Route: 065
  5. LEXAPRO [Concomitant]
     Active Substance: ESCITALOPRAM OXALATE
     Indication: Depression
     Dosage: UNK UNK, UNKNOWN FREQ.
     Route: 065
  6. Constan [Concomitant]
     Indication: Nausea
     Dosage: UNK UNK, UNKNOWN FREQ.
     Route: 065

REACTIONS (9)
  - Malaise [Not Recovered/Not Resolved]
  - Feeding disorder [Recovering/Resolving]
  - Neutrophil count decreased [Recovered/Resolved]
  - Eosinophil count increased [Recovering/Resolving]
  - Depression [Recovering/Resolving]
  - Nausea [Recovered/Resolved]
  - Blood calcium increased [Unknown]
  - Malignant neoplasm progression [Not Recovered/Not Resolved]
  - Drug ineffective [Unknown]

NARRATIVE: CASE EVENT DATE: 20230202
